FAERS Safety Report 20098346 (Version 2)
Quarter: 2021Q4

REPORT INFORMATION
  Report Type: Spontaneous
  Country: US (occurrence: US)
  Receive Date: 20211122
  Receipt Date: 20211228
  Transmission Date: 20220303
  Serious: Yes (Death, Other)
  Sender: FDA-Public Use
  Company Number: US-PFIZER INC-202101619603

PATIENT
  Age: 75 Year
  Sex: Female

DRUGS (8)
  1. INLYTA [Suspect]
     Active Substance: AXITINIB
     Indication: Renal cancer
     Dosage: 5 MG, 2X/DAY
     Route: 048
     Dates: start: 20210914
  2. INLYTA [Suspect]
     Active Substance: AXITINIB
     Dosage: 5 MG, 2X/DAY
     Route: 048
     Dates: start: 20211008, end: 20211018
  3. ACETAMINOPHEN\HYDROCODONE [Concomitant]
     Active Substance: ACETAMINOPHEN\HYDROCODONE
     Indication: Bone pain
     Dosage: 5-325 MG TABLET (TAKE 1/2 OR 1 PILL EVERY 6 HOURS AS NEEDED FOR PAIN)
     Dates: start: 20211007
  4. HYDROXYZINE [Concomitant]
     Active Substance: HYDROXYZINE HYDROCHLORIDE
     Dosage: 25 MG (BY MOUTH EVERY 8(EIGHT) HOURS AS NEEDED)
     Route: 048
     Dates: start: 20210923
  5. LIDOCAINE\PRILOCAINE [Concomitant]
     Active Substance: LIDOCAINE\PRILOCAINE
     Dosage: APPLY TO AFFECTED AREA ONCE PATIENT NOT TAKING: REPORTED ON 27SEP2021
     Dates: start: 20210924
  6. ONDANSETRON [Concomitant]
     Active Substance: ONDANSETRON
     Indication: Nausea
     Dosage: 8 MG, 2X/DAY (PATIENT NOT TAKING: REPORTED ON 27SEP2021)
     Dates: start: 20210924
  7. ONDANSETRON [Concomitant]
     Active Substance: ONDANSETRON
     Indication: Vomiting
  8. TRAMADOL [Concomitant]
     Active Substance: TRAMADOL
     Indication: Pain
     Dosage: 50 MG (TAKE 0.5 TABLETS (25 MG TOTAL) BY MOUTH EVERY 6 (SIX) HOURS AS NEEDED FOR SEVERE PAIN)
     Route: 048
     Dates: start: 20211013

REACTIONS (6)
  - Neoplasm progression [Fatal]
  - Somnolence [Unknown]
  - Back pain [Unknown]
  - Peripheral swelling [Unknown]
  - Oedema peripheral [Unknown]
  - Blood potassium increased [Unknown]
